FAERS Safety Report 8557997-8 (Version None)
Quarter: 2012Q3

REPORT INFORMATION
  Report Type: 
  Country: None (occurrence: None)
  Receive Date: 20120720
  Receipt Date: 20120710
  Transmission Date: 20120928
  Serious: Yes (Hospitalization, Other)
  Sender: FDA-Public Use
  Company Number: AUR-APL-2012-01899

PATIENT
  Age: 59 Year
  Sex: Female

DRUGS (21)
  1. ASPIRIN [Concomitant]
  2. PEPCID [Concomitant]
  3. MULTIVITAMIN [Concomitant]
  4. VICODIN [Concomitant]
  5. BACTROBAN [Concomitant]
  6. CYCLOBENZAPRINE [Concomitant]
  7. LISINOPRIL [Concomitant]
  8. ZOFRAN [Concomitant]
  9. GEMFIBROZIL [Concomitant]
  10. METFFORMIN HYDROCHLORIDE [Concomitant]
  11. BACTRIM DS [Concomitant]
  12. ADVAIR DISKUS (SERETIDE) [Concomitant]
  13. METFFORMIN HYDROCHLORIDE [Suspect]
     Indication: TYPE 2 DIABETES MELLITUS
     Dosage: 2000 MG (1000 MG, 2 IN 1 D), ORAL
     Route: 048
     Dates: start: 20090121, end: 20120115
  14. ZOCOR [Concomitant]
  15. ASCORBIC ACID [Concomitant]
  16. ZOLPIDEM [Concomitant]
  17. PLAVIX [Concomitant]
  18. ZOLOFT [Concomitant]
  19. CALCIUM WITH VITAMIN D (LEKOVIT CA) [Concomitant]
  20. COREG [Concomitant]
  21. LANTUS [Concomitant]

REACTIONS (1)
  - RENAL FAILURE [None]
